FAERS Safety Report 21299562 (Version 1)
Quarter: 2022Q3

REPORT INFORMATION
  Report Type: Spontaneous
  Country: US (occurrence: None)
  Receive Date: 20220906
  Receipt Date: 20220906
  Transmission Date: 20221027
  Serious: No
  Sender: FDA-Public Use
  Company Number: None

PATIENT
  Age: 77 Year
  Sex: Female
  Weight: 40.82 kg

DRUGS (13)
  1. OMEPRAZOLE [Suspect]
     Active Substance: OMEPRAZOLE
     Indication: Gastric ulcer
     Dosage: FREQUENCY : TWICE A DAY;?
     Route: 048
     Dates: start: 19900101
  2. OMEPRAZOLE [Suspect]
     Active Substance: OMEPRAZOLE
     Indication: Gastrooesophageal reflux disease
  3. OMEPRAZOLE [Suspect]
     Active Substance: OMEPRAZOLE
     Indication: Gastrointestinal pain
  4. CEPHALEXIN [Concomitant]
     Active Substance: CEPHALEXIN
  5. EZETIMIBE [Concomitant]
     Active Substance: EZETIMIBE
  6. ACYCLOVIR [Concomitant]
     Active Substance: ACYCLOVIR
  7. AMIODARONE [Concomitant]
     Active Substance: AMIODARONE
  8. LEVOTHYROXINE [Concomitant]
     Active Substance: LEVOTHYROXINE
  9. ROSUVASTATIN [Concomitant]
     Active Substance: ROSUVASTATIN
  10. WARFARIN [Concomitant]
     Active Substance: WARFARIN
  11. IPRATROPIUM SPRAY [Concomitant]
  12. OMEPRAZOLE [Concomitant]
     Active Substance: OMEPRAZOLE
  13. CALCIUM 500 MG [Concomitant]

REACTIONS (3)
  - Product substitution issue [None]
  - Product physical consistency issue [None]
  - Diarrhoea [None]

NARRATIVE: CASE EVENT DATE: 20220826
